FAERS Safety Report 7608711-1 (Version None)
Quarter: 2011Q3

REPORT INFORMATION
  Report Type: 
  Country: None (occurrence: None)
  Receive Date: 20110714
  Receipt Date: 20110708
  Transmission Date: 20111222
  Serious: Yes (Death)
  Sender: FDA-Public Use
  Company Number: US-CELGENEUS-163-20785-11070823

PATIENT
  Age: 68 Year
  Sex: Male

DRUGS (3)
  1. LOW DOSE DEXAMETHASONE [Concomitant]
     Indication: MULTIPLE MYELOMA
     Route: 065
     Dates: start: 20100205, end: 20100410
  2. ASPIRIN [Concomitant]
     Route: 065
  3. THALOMID [Suspect]
     Indication: MULTIPLE MYELOMA
     Dosage: 100 MILLIGRAM
     Route: 048
     Dates: start: 20100205, end: 20100410

REACTIONS (1)
  - CARDIOVASCULAR DISORDER [None]
